FAERS Safety Report 21236737 (Version 1)
Quarter: 2022Q3

REPORT INFORMATION
  Report Type: Spontaneous
  Country: US (occurrence: US)
  Receive Date: 20220822
  Receipt Date: 20220822
  Transmission Date: 20221027
  Serious: Yes (Hospitalization, Other)
  Sender: FDA-Public Use
  Company Number: US-BRISTOL-MYERS SQUIBB COMPANY-2022-092326

PATIENT
  Age: 41 Year
  Sex: Male

DRUGS (2)
  1. NIVOLUMAB [Suspect]
     Active Substance: NIVOLUMAB
     Indication: Metastatic malignant melanoma
     Dosage: 2 CYCLES
     Route: 065
  2. IPILIMUMAB [Suspect]
     Active Substance: IPILIMUMAB
     Indication: Metastatic malignant melanoma
     Route: 065

REACTIONS (7)
  - Musculoskeletal discomfort [Unknown]
  - Dry mouth [Unknown]
  - Thyroiditis [Unknown]
  - Hypertransaminasaemia [Unknown]
  - Liver function test increased [Unknown]
  - Immune-mediated lung disease [Recovered/Resolved]
  - Off label use [Unknown]
